FAERS Safety Report 4539816-X (Version None)
Quarter: 2004Q4

REPORT INFORMATION
  Report Type: 
  Country: None (occurrence: None)
  Receive Date: 20041222
  Receipt Date: 20041206
  Transmission Date: 20050328
  Serious: Yes (Hospitalization)
  Sender: FDA-Public Use
  Company Number: USA041285408

PATIENT
  Age: 68 Year
  Sex: Male
  Weight: 85 kg

DRUGS (2)
  1. HUMULIN 70/30 [Suspect]
     Indication: BLOOD GLUCOSE ABNORMAL
     Dates: start: 20040601, end: 20040901
  2. HUMULIN-HUMAN INSULIN (RDNA) UNKNOWN FORMULATION (HU [Suspect]
     Indication: BLOOD GLUCOSE ABNORMAL
     Dates: start: 20040601, end: 20040901

REACTIONS (1)
  - COMPLICATIONS OF TRANSPLANTED LIVER [None]
